FAERS Safety Report 7479425-6 (Version None)
Quarter: 2011Q2

REPORT INFORMATION
  Report Type: 
  Country: None (occurrence: None)
  Receive Date: 20110513
  Receipt Date: 20110502
  Transmission Date: 20111010
  Serious: Yes (Other)
  Sender: FDA-Public Use
  Company Number: GR-ELI_LILLY_AND_COMPANY-GR201105001300

PATIENT
  Age: 40 Year
  Sex: Male
  Weight: 70 kg

DRUGS (5)
  1. OLANZAPINE [Suspect]
  2. ATRACURIUM BESYLATE [Concomitant]
     Indication: ENDOTRACHEAL INTUBATION
  3. PROPOFOL [Concomitant]
     Indication: ANAESTHESIA
     Dosage: 150 MG, UNK
  4. LIDOCAINE [Concomitant]
     Indication: ANAESTHESIA
     Dosage: 60 MG, UNK
  5. FENTANYL [Concomitant]
     Indication: ANAESTHESIA
     Dosage: 100 UG, UNK

REACTIONS (6)
  - OVERDOSE [None]
  - MYOCLONUS [None]
  - OPISTHOTONUS [None]
  - DRUG INTERACTION [None]
  - OBSTRUCTIVE AIRWAYS DISORDER [None]
  - DYSTONIA [None]
